FAERS Safety Report 6996841-7 (Version None)
Quarter: 2010Q3

REPORT INFORMATION
  Report Type: 
  Country: None (occurrence: None)
  Receive Date: 20100918
  Receipt Date: 20090901
  Transmission Date: 20110219
  Serious: No
  Sender: FDA-Public Use
  Company Number: US-WYE-H10118709

PATIENT
  Sex: Female
  Weight: 98.97 kg

DRUGS (6)
  1. EFFEXOR XR [Suspect]
     Indication: HOT FLUSH
     Route: 048
     Dates: start: 20090616, end: 20090725
  2. DILTIAZEM HYDROCHLORIDE [Concomitant]
  3. CALCIUM [Concomitant]
  4. GUANFACINE HYDROCHLORIDE [Concomitant]
  5. CELEXA [Concomitant]
  6. ARIMIDEX [Concomitant]

REACTIONS (5)
  - CHILLS [None]
  - CRYING [None]
  - DEPRESSION [None]
  - DRUG INEFFECTIVE FOR UNAPPROVED INDICATION [None]
  - TREMOR [None]
